FAERS Safety Report 24038409 (Version 4)
Quarter: 2024Q3

REPORT INFORMATION
  Report Type: Spontaneous
  Country: US (occurrence: US)
  Receive Date: 20240702
  Receipt Date: 20240805
  Transmission Date: 20241017
  Serious: Yes (Other)
  Sender: ELI LILLY AND CO
  Company Number: US-ELI_LILLY_AND_COMPANY-US202407000347

PATIENT
  Age: 72 Year
  Sex: Male

DRUGS (4)
  1. RETEVMO [Suspect]
     Active Substance: SELPERCATINIB
     Indication: Medullary thyroid cancer
     Dosage: 240 MG, DAILY (4 CAPSULE OF 80 MG)
     Route: 048
     Dates: start: 202401
  2. RETEVMO [Suspect]
     Active Substance: SELPERCATINIB
     Dosage: 80 MG, UNKNOWN
     Route: 048
     Dates: start: 20240613
  3. RETEVMO [Suspect]
     Active Substance: SELPERCATINIB
     Dosage: 80 MG, UNKNOWN
     Route: 048
  4. RETEVMO [Suspect]
     Active Substance: SELPERCATINIB
     Dosage: 80 MG, UNKNOWN
     Route: 048

REACTIONS (4)
  - Blood pressure increased [Recovered/Resolved]
  - Blood urea increased [Not Recovered/Not Resolved]
  - Joint swelling [Not Recovered/Not Resolved]
  - Cough [Not Recovered/Not Resolved]

NARRATIVE: CASE EVENT DATE: 20240601
